FAERS Safety Report 6985392-1 (Version None)
Quarter: 2010Q3

REPORT INFORMATION
  Report Type: 
  Country: None (occurrence: None)
  Receive Date: 20100915
  Receipt Date: 20100915
  Transmission Date: 20110219
  Serious: Yes (Other)
  Sender: FDA-Public Use
  Company Number: US-PFIZER INC-2010085372

PATIENT
  Sex: Male
  Weight: 97.052 kg

DRUGS (5)
  1. TOVIAZ [Suspect]
     Dosage: 4 MG, 1X/DAY
     Route: 048
     Dates: start: 20100520
  2. WARFARIN [Concomitant]
     Dosage: UNK
  3. SYNTHROID [Concomitant]
     Indication: THYROID DISORDER
     Dosage: UNK
  4. CYCLOSPORINE [Concomitant]
     Indication: DRY EYE
     Dosage: UNK
  5. SYSTANE [Concomitant]
     Indication: VISION BLURRED
     Dosage: UNK

REACTIONS (8)
  - ASTHENIA [None]
  - DIARRHOEA [None]
  - DRUG INEFFECTIVE [None]
  - DRY EYE [None]
  - LACRIMATION INCREASED [None]
  - MYELOPATHY [None]
  - VISION BLURRED [None]
  - VOMITING [None]
